FAERS Safety Report 9857833 (Version 1)
Quarter: 2014Q1

REPORT INFORMATION
  Report Type: Report from Study
  Country: US (occurrence: US)
  Receive Date: 20140131
  Receipt Date: 20140131
  Transmission Date: 20141002
  Serious: Yes (Death)
  Sender: FDA-Public Use
  Company Number: US-ROCHE-1342317

PATIENT
  Age: 52 Year
  Sex: Female

DRUGS (1)
  1. RITUXAN [Suspect]
     Indication: LYMPHOMA
     Dosage: 14-JUL-2013  713 MG DOSE, 10-OCT-2013 713 MG DOSE
     Route: 042
     Dates: start: 20131114

REACTIONS (1)
  - Death [Fatal]
